FAERS Safety Report 9343271 (Version 2)
Quarter: 2013Q3

REPORT INFORMATION
  Report Type: Spontaneous
  Country: US (occurrence: US)
  Receive Date: 20130612
  Receipt Date: 20130701
  Transmission Date: 20140515
  Serious: Yes (Hospitalization)
  Sender: FDA-Public Use
  Company Number: US-BRISTOL-MYERS SQUIBB COMPANY-19000199

PATIENT
  Age: 56 Year
  Sex: Female
  Weight: 115.64 kg

DRUGS (20)
  1. BYDUREON [Suspect]
     Indication: TYPE 2 DIABETES MELLITUS
     Dosage: LOT NO:73258,EXPDT:30DEC13. 2MG EVERY 7 DYS SQ
     Route: 058
     Dates: start: 20130425
  2. CHLORDIAZEPOXIDE HCL [Concomitant]
  3. CRESTOR [Concomitant]
     Route: 048
  4. AMLODIPINE BESYLATE [Concomitant]
     Route: 048
  5. ATENOLOL [Concomitant]
     Route: 048
  6. METFORMIN [Concomitant]
     Dosage: 1000 MG,BID
  7. CELEBREX [Concomitant]
     Route: 048
  8. FLUOXETINE [Concomitant]
  9. ASPIRIN [Concomitant]
     Route: 048
  10. VITAMIN D [Concomitant]
     Route: 048
  11. VITAMIN B12 [Concomitant]
     Route: 048
  12. XANAX [Concomitant]
  13. CYCLOBENZAPRINE [Concomitant]
     Indication: MUSCLE SPASMS
     Dosage: AS NEEDED
     Route: 048
  14. FIBERCON [Concomitant]
     Route: 048
  15. HYDROCHLOROTHIAZIDE [Concomitant]
     Route: 048
  16. LIBRAX [Concomitant]
     Dosage: 2.5MG-5MG
     Route: 048
  17. MULTIVITAMINS [Concomitant]
     Route: 048
  18. OMEPRAZOLE [Concomitant]
     Route: 048
  19. VENLAFAXINE HCL [Concomitant]
     Route: 048
  20. NORCO [Concomitant]
     Indication: PAIN
     Dosage: AS NEEDED

REACTIONS (3)
  - Nephrolithiasis [Recovered/Resolved]
  - Urinary tract infection [Unknown]
  - Haematochezia [Unknown]
